FAERS Safety Report 10750122 (Version 2)
Quarter: 2015Q1

REPORT INFORMATION
  Report Type: Report from Study
  Country: IT (occurrence: IT)
  Receive Date: 20150129
  Receipt Date: 20150217
  Transmission Date: 20150721
  Serious: Yes (Hospitalization)
  Sender: FDA-Public Use
  Company Number: IT-AMGEN-2014-2419

PATIENT
  Age: 65 Year
  Sex: Male
  Weight: 72 kg

DRUGS (33)
  1. DEXAMETHASONE. [Suspect]
     Active Substance: DEXAMETHASONE
     Dosage: FREQUENCY: 8 EVERY 28 DAYS; FREQ. TEXT: DAYS 1,2,8,9,15,16,22,23, EVERY 28 DAYS
     Route: 048
     Dates: start: 20140226, end: 20140227
  2. KROVANEG [Concomitant]
     Indication: PROPHYLAXIS
     Route: 048
     Dates: start: 20130703
  3. BISOPROLOL [Concomitant]
     Active Substance: BISOPROLOL
     Indication: PRODUCT USED FOR UNKNOWN INDICATION
     Route: 048
     Dates: start: 20140402, end: 20141104
  4. DEXAMETHASONE. [Suspect]
     Active Substance: DEXAMETHASONE
     Dosage: FREQUENCY: 8 EVERY 28 DAYS; FREQ. TEXT: DAYS 1,2,8,9,15,16,22,23, EVERY 28 DAYS
     Route: 048
     Dates: start: 20131016, end: 20131017
  5. DEXAMETHASONE. [Suspect]
     Active Substance: DEXAMETHASONE
     Dosage: FREQUENCY: 8 EVERY 28 DAYS; FREQ. TEXT: DAYS 1,2,8,9,15,16,22,23, EVERY 28 DAYS
     Route: 042
     Dates: start: 20140609, end: 20140624
  6. DEXAMETHASONE. [Suspect]
     Active Substance: DEXAMETHASONE
     Dosage: FREQUENCY: 8 EVERY 28 DAYS; FREQ. TEXT: DAYS 1,2,8,9,15,16,22,23, EVERY 28 DAYS
     Route: 042
     Dates: start: 20140707, end: 20140722
  7. DEXAMETHASONE. [Suspect]
     Active Substance: DEXAMETHASONE
     Dosage: FREQUENCY: 8 EVERY 28 DAYS; FREQ. TEXT: DAYS 1,2,8,9,15,16,22,23, EVERY 28 DAYS
     Route: 048
     Dates: start: 20140728, end: 20140729
  8. ACICLIN [Concomitant]
     Active Substance: ACYCLOVIR
     Indication: ANTIVIRAL PROPHYLAXIS
     Route: 048
     Dates: start: 20130703
  9. EXOCIN [Concomitant]
     Active Substance: OFLOXACIN
     Indication: CONJUNCTIVITIS
     Route: 061
     Dates: start: 20131014, end: 20131027
  10. CARFILZOMIB [Suspect]
     Active Substance: CARFILZOMIB
     Dosage: FREQUENCY: 6 EVERY 28 DAYS; FREQ. TEXT: DAYS 1,2,8, 9, 15, 16 EVERY 28 DAYS
     Route: 042
     Dates: start: 20130731, end: 20131224
  11. DEXAMETHASONE. [Suspect]
     Active Substance: DEXAMETHASONE
     Dosage: FREQUENCY: 8 EVERY 28 DAYS; FREQ. TEXT: DAYS 1,2,8,9,15,16,22,23, EVERY 28 DAYS
     Route: 048
     Dates: start: 20130821, end: 20130822
  12. DEXAMETHASONE. [Suspect]
     Active Substance: DEXAMETHASONE
     Dosage: FREQUENCY: 8 EVERY 28 DAYS; FREQ. TEXT: DAYS 1,2,8,9,15,16,22,23, EVERY 28 DAYS
     Route: 042
     Dates: start: 20131023, end: 20140220
  13. DEXAMETHASONE. [Suspect]
     Active Substance: DEXAMETHASONE
     Dosage: FREQUENCY: 8 EVERY 28 DAYS; FREQ. TEXT: DAYS 1,2,8,9,15,16,22,23, EVERY 28 DAYS
     Route: 042
     Dates: start: 20140402, end: 20140402
  14. DEXAMETHASONE. [Suspect]
     Active Substance: DEXAMETHASONE
     Dosage: FREQUENCY: 8 EVERY 28 DAYS; FREQ. TEXT: DAYS 1,2,8,9,15,16,22,23, EVERY 28 DAYS
     Route: 048
     Dates: start: 20141013, end: 20141014
  15. DEXAMETHASONE. [Suspect]
     Active Substance: DEXAMETHASONE
     Dosage: FREQUENCY: 8 EVERY 28 DAYS; FREQ. TEXT: DAYS 1,2,8,9,15,16,22,23, EVERY 28 DAYS
     Route: 042
     Dates: start: 20130731, end: 20130814
  16. DEXAMETHASONE. [Suspect]
     Active Substance: DEXAMETHASONE
     Dosage: FREQUENCY: 8 EVERY 28 DAYS; FREQ. TEXT: DAYS 1,2,8,9,15,16,22,23, EVERY 28 DAYS
     Route: 042
     Dates: start: 20141027, end: 20141028
  17. CARFILZOMIB [Suspect]
     Active Substance: CARFILZOMIB
     Dosage: FREQUENCY: 4 EVERY 21 DAYS; FREQ. TEXT: DAYS 8, 9, 15, 16
     Route: 042
     Dates: start: 20130710, end: 20130718
  18. CARFILZOMIB [Suspect]
     Active Substance: CARFILZOMIB
     Dosage: FREQUENCY: 6 EVERY 28 DAYS; FREQ. TEXT: DAYS 1,2,8, 9, 15, 16 EVERY 28 DAYS
     Route: 042
     Dates: start: 20140609, end: 20141028
  19. DEXAMETHASONE. [Suspect]
     Active Substance: DEXAMETHASONE
     Dosage: FREQUENCY: 8 EVERY 28 DAYS; FREQ. TEXT: DAYS 1,2,8,9,15,16,22,23, EVERY 28 DAYS
     Route: 048
     Dates: start: 20130918, end: 20130919
  20. ZEFFIX [Concomitant]
     Active Substance: LAMIVUDINE
     Indication: PROPHYLAXIS
     Route: 048
     Dates: start: 20130703
  21. CARFILZOMIB [Suspect]
     Active Substance: CARFILZOMIB
     Dosage: FREQUENCY: 6 EVERY 28 DAYS; FREQ. TEXT: DAYS 1,2,8, 9, 15, 16 EVERY 28 DAYS
     Route: 042
     Dates: start: 20140108, end: 20140402
  22. DEXAMETHASONE. [Suspect]
     Active Substance: DEXAMETHASONE
     Dosage: FREQUENCY: 8 EVERY 28 DAYS; FREQ. TEXT: DAYS 1,2,8,9,15,16,22,23, EVERY 28 DAYS
     Route: 042
     Dates: start: 20130828, end: 20130912
  23. DEXAMETHASONE. [Suspect]
     Active Substance: DEXAMETHASONE
     Dosage: FREQUENCY: 8 EVERY 28 DAYS; FREQ. TEXT: DAYS 1,2,8,9,15,16,22,23, EVERY 28 DAYS
     Route: 042
     Dates: start: 20130925, end: 20131010
  24. DEXAMETHASONE. [Suspect]
     Active Substance: DEXAMETHASONE
     Dosage: FREQUENCY: 8 EVERY 28 DAYS; FREQ. TEXT: DAYS 1,2,8,9,15,16,22,23, EVERY 28 DAYS
     Route: 048
     Dates: start: 20140326, end: 20140327
  25. DEXAMETHASONE. [Suspect]
     Active Substance: DEXAMETHASONE
     Dosage: FREQUENCY: 8 EVERY 28 DAYS; FREQ. TEXT: DAYS 1,2,8,9,15,16,22,23, EVERY 28 DAYS
     Route: 048
     Dates: start: 20140630, end: 20140701
  26. DEXAMETHASONE. [Suspect]
     Active Substance: DEXAMETHASONE
     Dosage: FREQUENCY: 8 EVERY 28 DAYS; FREQ. TEXT: DAYS 1,2,8,9,15,16,22,23, EVERY 28 DAYS
     Route: 042
     Dates: start: 20140804, end: 20140819
  27. DEXAMETHASONE. [Suspect]
     Active Substance: DEXAMETHASONE
     Dosage: FREQUENCY: 8 EVERY 28 DAYS; FREQ. TEXT: DAYS 1,2,8,9,15,16,22,23, EVERY 28 DAYS
     Route: 048
     Dates: start: 20140825, end: 20140826
  28. DEXAMETHASONE. [Suspect]
     Active Substance: DEXAMETHASONE
     Dosage: FREQUENCY: 8 EVERY 28 DAYS; FREQ. TEXT: DAYS 1,2,8,9,15,16,22,23, EVERY 28 DAYS
     Route: 042
     Dates: start: 20140922, end: 20141007
  29. RAMIPRIL. [Concomitant]
     Active Substance: RAMIPRIL
     Indication: PRODUCT USED FOR UNKNOWN INDICATION
     Route: 048
     Dates: start: 20140402, end: 20141104
  30. DEXAMETHASONE. [Suspect]
     Active Substance: DEXAMETHASONE
     Indication: PLASMA CELL MYELOMA
     Dosage: FREQUENCY: 8 EVERY 28 DAYS; FREQ. TEXT: DAYS 1,2,8,9,15,16,22,23, EVERY 28 DAYS
     Route: 042
     Dates: start: 20130703, end: 20130718
  31. DEXAMETHASONE. [Suspect]
     Active Substance: DEXAMETHASONE
     Dosage: FREQUENCY: 8 EVERY 28 DAYS; FREQ. TEXT: DAYS 1,2,8,9,15,16,22,23, EVERY 28 DAYS
     Route: 048
     Dates: start: 20130724, end: 20130725
  32. DEXAMETHASONE. [Suspect]
     Active Substance: DEXAMETHASONE
     Dosage: FREQUENCY: 8 EVERY 28 DAYS; FREQ. TEXT: DAYS 1,2,8,9,15,16,22,23, EVERY 28 DAYS
     Route: 042
     Dates: start: 20140305, end: 20140320
  33. CARFILZOMIB [Suspect]
     Active Substance: CARFILZOMIB
     Indication: PLASMA CELL MYELOMA
     Dosage: FREQ. TEXT: DAYS 1, 2
     Route: 042
     Dates: start: 20130703, end: 20130704

REACTIONS (1)
  - Hypertensive crisis [Recovered/Resolved]

NARRATIVE: CASE EVENT DATE: 20141031
